FAERS Safety Report 10042845 (Version 1)
Quarter: 2014Q1

REPORT INFORMATION
  Report Type: Spontaneous
  Country: US (occurrence: US)
  Receive Date: 20140327
  Receipt Date: 20140327
  Transmission Date: 20141002
  Serious: Yes (Other)
  Sender: FDA-Public Use
  Company Number: US-GILEAD-2014-0097728

PATIENT
  Age: 72 Year
  Sex: Female
  Weight: 56.69 kg

DRUGS (3)
  1. SOVALDI [Suspect]
     Indication: HEPATITIS C
     Route: 065
  2. ACTIMMUNE [Suspect]
     Indication: HEPATITIS C
     Dosage: UNK
     Route: 065
     Dates: start: 201401
  3. RIBAVIRIN [Suspect]
     Indication: HEPATITIS C
     Route: 065

REACTIONS (4)
  - Dyspnoea [Unknown]
  - Anaemia [Unknown]
  - Drug interaction [Unknown]
  - Off label use [Unknown]
